FAERS Safety Report 16887490 (Version 3)
Quarter: 2022Q1

REPORT INFORMATION
  Report Type: Spontaneous
  Country: ES (occurrence: ES)
  Receive Date: 20191004
  Receipt Date: 20220315
  Transmission Date: 20220423
  Serious: Yes (Hospitalization, Disabling, Other)
  Sender: FDA-Public Use
  Company Number: None

PATIENT
  Age: 71 Year
  Sex: Female

DRUGS (4)
  1. ALENDRONIC ACID [Suspect]
     Active Substance: ALENDRONIC ACID
     Indication: Osteoporosis
     Dosage: 70 MILLIGRAM, EVERY WEEK
     Route: 065
  2. ACETAMINOPHEN [Suspect]
     Active Substance: ACETAMINOPHEN
     Indication: Osteoarthritis
     Dosage: UNK
     Route: 065
  3. ACETAMINOPHEN [Suspect]
     Active Substance: ACETAMINOPHEN
     Indication: Osteoporosis
     Dosage: UNK
     Route: 065
  4. CALCIFEDIOL [Suspect]
     Active Substance: CALCIFEDIOL
     Indication: Osteoarthritis
     Dosage: UNK
     Route: 065

REACTIONS (9)
  - Femur fracture [Unknown]
  - Fall [Unknown]
  - Injury [Unknown]
  - Pain [Unknown]
  - Disability [Unknown]
  - Balance disorder [Unknown]
  - Gait inability [Unknown]
  - Pathological fracture [Unknown]
  - Product prescribing error [Unknown]
